FAERS Safety Report 4291776-5 (Version None)
Quarter: 2004Q1

REPORT INFORMATION
  Report Type: 
  Country: None (occurrence: None)
  Receive Date: 20040211
  Receipt Date: 20030319
  Transmission Date: 20041129
  Serious: No
  Sender: FDA-Public Use
  Company Number: US-GLAXOSMITHKLINE-A0401025A

PATIENT
  Age: 60 Year
  Sex: Female

DRUGS (5)
  1. IMITREX [Suspect]
     Route: 058
     Dates: start: 20030319
  2. DECADRON [Concomitant]
  3. IV HYDROCORTISONE [Concomitant]
  4. PHENERGAN [Concomitant]
  5. ZOFRAN [Concomitant]

REACTIONS (1)
  - DRUG INEFFECTIVE [None]
